FAERS Safety Report 5136178-4 (Version None)
Quarter: 2006Q4

REPORT INFORMATION
  Report Type: 
  Country: None (occurrence: None)
  Receive Date: 20061027
  Receipt Date: 20061017
  Transmission Date: 20070319
  Serious: Yes (Hospitalization)
  Sender: FDA-Public Use
  Company Number: DE-JNJFOC-20060900765

PATIENT
  Age: 35 Year
  Sex: Female

DRUGS (1)
  1. HALDOL [Suspect]
     Indication: MANIA
     Route: 065

REACTIONS (6)
  - CONFUSIONAL STATE [None]
  - CONSTIPATION [None]
  - DEPRESSION [None]
  - DRUG EXPOSURE DURING PREGNANCY [None]
  - SUICIDE ATTEMPT [None]
  - URINARY RETENTION [None]
